FAERS Safety Report 12735533 (Version 2)
Quarter: 2016Q3

REPORT INFORMATION
  Report Type: Spontaneous
  Country: PE (occurrence: PE)
  Receive Date: 20160912
  Receipt Date: 20160928
  Transmission Date: 20161109
  Serious: Yes (Hospitalization)
  Sender: FDA-Public Use
  Company Number: PE-SA-2016SA131354

PATIENT
  Age: 45 Year
  Sex: Male
  Weight: 52 kg

DRUGS (1)
  1. FABRAZYME [Suspect]
     Active Substance: AGALSIDASE BETA
     Indication: FABRY^S DISEASE
     Route: 041
     Dates: start: 20110101, end: 20160721

REACTIONS (3)
  - Hypertension [Recovered/Resolved]
  - Blood pressure fluctuation [Not Recovered/Not Resolved]
  - Myocardial infarction [Recovered/Resolved]

NARRATIVE: CASE EVENT DATE: 20160623
